FAERS Safety Report 8964652 (Version 3)
Quarter: 2012Q4

REPORT INFORMATION
  Report Type: 
  Country: US (occurrence: US)
  Receive Date: 20121213
  Receipt Date: 20121221
  Transmission Date: 20130627
  Serious: No
  Sender: FDA-Public Use
  Company Number: US-PFIZER INC-2012310045

PATIENT
  Age: 72 Year
  Sex: Female
  Weight: 91.16 kg

DRUGS (7)
  1. TOVIAZ [Suspect]
     Indication: OVERACTIVE BLADDER
     Dosage: 4 mg, UNK
     Dates: start: 201209
  2. METFORMIN [Concomitant]
     Indication: DIABETES
     Dosage: 500 mg, 2x/day
  3. LOSARTAN [Concomitant]
     Dosage: 50 mg, UNK
  4. SYNTHROID [Concomitant]
     Indication: UNSPECIFIED DISORDER OF THYROID
     Dosage: 25 ug, 1x/day
  5. PLAVIX [Concomitant]
     Dosage: 75 mg, 1x/day
  6. BABY ASPIRIN [Concomitant]
     Dosage: UNK
  7. LORATADINE [Concomitant]
     Indication: ALLERGY
     Dosage: 10 mg, 1x/day

REACTIONS (1)
  - Drug ineffective [Unknown]
